FAERS Safety Report 22274164 (Version 4)
Quarter: 2023Q2

REPORT INFORMATION
  Report Type: Report from Study
  Country: CN (occurrence: CN)
  Receive Date: 20230502
  Receipt Date: 20230522
  Transmission Date: 20230721
  Serious: No
  Sender: FDA-Public Use
  Company Number: CN-PFIZER INC-PV202300073892

PATIENT
  Age: 26 Year
  Sex: Female
  Weight: 55 kg

DRUGS (2)
  1. NIRMATRELVIR\RITONAVIR [Suspect]
     Active Substance: NIRMATRELVIR\RITONAVIR
     Indication: COVID-19 treatment
     Dosage: [PF-07321332 300 MG]/[RITONAVIR 100 MG]; 2X/DAY
     Dates: start: 20220329, end: 20220403
  2. LIAN HUA QING WEN [Concomitant]
     Indication: COVID-19
     Dosage: UNK
     Route: 048
     Dates: start: 20220327, end: 20220329

REACTIONS (4)
  - Neutropenia [Recovered/Resolved]
  - Hypoalbuminaemia [Recovered/Resolved]
  - Dysgeusia [Recovered/Resolved]
  - Lymphocytosis [Unknown]

NARRATIVE: CASE EVENT DATE: 20220331
